FAERS Safety Report 7461408-3 (Version None)
Quarter: 2011Q2

REPORT INFORMATION
  Report Type: 
  Country: None (occurrence: None)
  Receive Date: 20110428
  Receipt Date: 20100924
  Transmission Date: 20111010
  Serious: Yes (Hospitalization)
  Sender: FDA-Public Use
  Company Number: 2010GW000776

PATIENT
  Age: 83 Year
  Sex: Male
  Weight: 79.3795 kg

DRUGS (2)
  1. ALDARA [Suspect]
     Indication: PRECANCEROUS SKIN LESION
     Dosage: 5 PCT;TIW;TOP ; 5 PCT;TIW;TOP
     Route: 061
     Dates: start: 20100816, end: 20100908
  2. ALDARA [Suspect]
     Indication: PRECANCEROUS SKIN LESION
     Dosage: 5 PCT;TIW;TOP ; 5 PCT;TIW;TOP
     Route: 061
     Dates: start: 20100927

REACTIONS (1)
  - MYOCARDIAL INFARCTION [None]
